FAERS Safety Report 16840026 (Version 1)
Quarter: 2019Q3

REPORT INFORMATION
  Report Type: Spontaneous
  Country: US (occurrence: US)
  Receive Date: 20190731
  Receipt Date: 20190731
  Transmission Date: 20191005
  Serious: Yes (Life-Threatening)
  Sender: FDA-Public Use
  Company Number: None

PATIENT
  Age: 58 Year
  Sex: Female
  Weight: 44.91 kg

DRUGS (6)
  1. HALDOL [Suspect]
     Active Substance: HALOPERIDOL
     Indication: PARANOIA
     Dosage: ?          QUANTITY:1 - INJECTION;OTHER ROUTE:BY MOUTH; INJECTON?
     Dates: start: 20190517, end: 201906
  2. PROZAC [Concomitant]
     Active Substance: FLUOXETINE HYDROCHLORIDE
  3. PROXIL [Concomitant]
     Active Substance: PROGLUMETACIN MALEATE
  4. OLANPAZINE [Concomitant]
  5. HALDOL [Suspect]
     Active Substance: HALOPERIDOL
     Indication: SCHIZOPHRENIA
     Dosage: ?          QUANTITY:1 - INJECTION;OTHER ROUTE:BY MOUTH; INJECTON?
     Dates: start: 20190517, end: 201906
  6. HALDOL [Suspect]
     Active Substance: HALOPERIDOL
     Indication: ANXIETY
     Dosage: ?          QUANTITY:1 - INJECTION;OTHER ROUTE:BY MOUTH; INJECTON?
     Dates: start: 20190517, end: 201906

REACTIONS (1)
  - Sedation complication [None]

NARRATIVE: CASE EVENT DATE: 20190701
